FAERS Safety Report 6024084-2 (Version None)
Quarter: 2008Q4

REPORT INFORMATION
  Report Type: 
  Country: None (occurrence: None)
  Receive Date: 20081224
  Receipt Date: 20081211
  Transmission Date: 20090506
  Serious: Yes (Hospitalization)
  Sender: FDA-Public Use
  Company Number: CIP08002724

PATIENT
  Age: 75 Year
  Sex: Female

DRUGS (3)
  1. FURADANTIN [Suspect]
     Indication: CYSTITIS
     Dosage: ORAL
     Route: 048
     Dates: start: 20080201, end: 20080913
  2. LODOZ /01166101/ (BISOPROLOL FUMARATE, HYDROCHLOROTHIAZIDE) 10/6.25MG [Suspect]
     Indication: HYPERTENSION
     Dosage: ORAL
     Route: 048
     Dates: end: 20080913
  3. AROMASIN [Concomitant]

REACTIONS (3)
  - HYPERSENSITIVITY [None]
  - RENAL FAILURE ACUTE [None]
  - TUBULOINTERSTITIAL NEPHRITIS [None]
